APPROVED DRUG PRODUCT: ADAPALENE
Active Ingredient: ADAPALENE
Strength: 0.1%
Dosage Form/Route: GEL;TOPICAL
Application: A090962 | Product #001
Applicant: P AND L DEVELOPMENT LLC
Approved: Jun 2, 2010 | RLD: No | RS: No | Type: OTC